FAERS Safety Report 7624746-7 (Version None)
Quarter: 2011Q3

REPORT INFORMATION
  Report Type: 
  Country: None (occurrence: None)
  Receive Date: 20110720
  Receipt Date: 20080821
  Transmission Date: 20111222
  Serious: Yes (Other)
  Sender: FDA-Public Use
  Company Number: US-BAYER-200826531NA

PATIENT
  Sex: Female
  Weight: 91.61 kg

DRUGS (30)
  1. MAGNEVIST [Suspect]
     Indication: NUCLEAR MAGNETIC RESONANCE IMAGING
     Dosage: UNK UNK, ONCE
  2. OPTIMARK [Suspect]
     Indication: ANGIOGRAM
  3. LOSARTAN [Concomitant]
  4. QUETIAPINE [Concomitant]
  5. OMNISCAN [Suspect]
     Indication: NUCLEAR MAGNETIC RESONANCE IMAGING
     Dosage: 20CC
     Dates: start: 20030221, end: 20030221
  6. OPTIMARK [Suspect]
  7. CITALOPRAM HYDROBROMIDE [Concomitant]
  8. PAROXETINE HCL [Concomitant]
  9. ACTOS [Concomitant]
  10. MAGNEVIST [Suspect]
     Dosage: 15 CC
     Dates: start: 20051005, end: 20051005
  11. OMNISCAN [Suspect]
     Dosage: 25CC
     Route: 042
     Dates: start: 20030805, end: 20030805
  12. MULTIHANCE [Suspect]
     Indication: NUCLEAR MAGNETIC RESONANCE IMAGING
  13. OPTIMARK [Suspect]
     Indication: NUCLEAR MAGNETIC RESONANCE IMAGING
  14. URSODIOL [Concomitant]
  15. FUROSEMIDE [Concomitant]
  16. LORAZEPAM [Concomitant]
  17. FOLIC ACID [Concomitant]
  18. GLUCOTROL [Concomitant]
  19. OMNISCAN [Suspect]
     Dosage: 25CC
     Route: 042
     Dates: start: 20030805, end: 20030805
  20. OMNISCAN [Suspect]
     Indication: NUCLEAR MAGNETIC RESONANCE IMAGING BRAIN
     Dosage: 20CC
     Dates: start: 20040121, end: 20040121
  21. OMNISCAN [Suspect]
  22. SYNTHROID [Concomitant]
  23. NEPHROCAPS [Concomitant]
  24. OMNISCAN [Suspect]
     Indication: ANGIOGRAM
     Dosage: 20CC
     Dates: start: 20040108, end: 20040108
  25. PROHANCE [Suspect]
     Indication: NUCLEAR MAGNETIC RESONANCE IMAGING
  26. EPOETIN NOS [Concomitant]
  27. AMLODIPINE [Concomitant]
  28. FERROUS SULFATE TAB [Concomitant]
  29. PROCRIT [Concomitant]
  30. PLAQUENIL [Concomitant]

REACTIONS (10)
  - PAIN [None]
  - NEPHROGENIC SYSTEMIC FIBROSIS [None]
  - EMOTIONAL DISTRESS [None]
  - INJURY [None]
  - GENERAL PHYSICAL HEALTH DETERIORATION [None]
  - MOBILITY DECREASED [None]
  - ANXIETY [None]
  - SCAR [None]
  - AMPUTATION [None]
  - FIBROSIS [None]
